FAERS Safety Report 17061517 (Version 1)
Quarter: 2019Q4

REPORT INFORMATION
  Report Type: Report from Study
  Country: US (occurrence: US)
  Receive Date: 20191121
  Receipt Date: 20191121
  Transmission Date: 20200122
  Serious: Yes (Other)
  Sender: FDA-Public Use
  Company Number: US-BAYER-2019-205610

PATIENT
  Sex: Female

DRUGS (2)
  1. STIVARGA [Suspect]
     Active Substance: REGORAFENIB
     Indication: MALIGNANT NEOPLASM OF UNKNOWN PRIMARY SITE
     Dosage: 160 MG, QD, SWALLOW 4 TABLETS WHOLE WITH WATER AND LOWFAT MEAL ONCE DAILY FOR 21 DAYS THEN 7 DAYS OF
     Route: 048
  2. STIVARGA [Suspect]
     Active Substance: REGORAFENIB
     Indication: MALIGNANT NEOPLASM OF UNKNOWN PRIMARY SITE
     Dosage: 80 MG, QD
     Route: 048

REACTIONS (6)
  - Liver disorder [None]
  - Neuropathy peripheral [None]
  - Pain [Not Recovered/Not Resolved]
  - Balance disorder [None]
  - Mental impairment [None]
  - Fatigue [None]
